FAERS Safety Report 20035413 (Version 1)
Quarter: 2021Q4

REPORT INFORMATION
  Report Type: Report from Study
  Country: AU (occurrence: AU)
  Receive Date: 20211104
  Receipt Date: 20211104
  Transmission Date: 20220303
  Serious: Yes (Hospitalization, Other)
  Sender: FDA-Public Use
  Company Number: AU-TAKEDA-2021TUS067817

PATIENT
  Age: 42 Year
  Sex: Male

DRUGS (6)
  1. PONATINIB [Suspect]
     Active Substance: PONATINIB
     Indication: Chronic myeloid leukaemia
     Dosage: 15 MILLIGRAM, QD
     Route: 065
     Dates: start: 20141125
  2. TASIGNA [Suspect]
     Active Substance: NILOTINIB
     Indication: Chronic myeloid leukaemia
     Dosage: 800 MILLIGRAM, QD
     Route: 048
     Dates: start: 20150601, end: 20150801
  3. TASIGNA [Suspect]
     Active Substance: NILOTINIB
     Dosage: 400 MILLIGRAM, QD
     Route: 048
     Dates: start: 20150907, end: 20151112
  4. TASIGNA [Suspect]
     Active Substance: NILOTINIB
     Dosage: 200 MILLIGRAM, QD
     Route: 065
  5. TASIGNA [Suspect]
     Active Substance: NILOTINIB
     Dosage: 15 MILLIGRAM, QD
     Route: 065
  6. ASCIMINIB [Suspect]
     Active Substance: ASCIMINIB
     Indication: Product used for unknown indication
     Dosage: 200 MILLIGRAM, QD
     Route: 065

REACTIONS (7)
  - Myositis [Unknown]
  - Cytopenia [Recovered/Resolved]
  - Liver function test abnormal [Unknown]
  - Platelet count decreased [Unknown]
  - Neutrophil count decreased [Unknown]
  - Influenza like illness [Unknown]
  - Drug ineffective [Unknown]

NARRATIVE: CASE EVENT DATE: 20150728
